FAERS Safety Report 5379035-0 (Version None)
Quarter: 2007Q3

REPORT INFORMATION
  Report Type: 
  Country: None (occurrence: None)
  Receive Date: 20070702
  Receipt Date: 20070620
  Transmission Date: 20080115
  Serious: Yes (Life-Threatening, Hospitalization)
  Sender: FDA-Public Use
  Company Number: CLOF-10567

PATIENT
  Age: 67 Year
  Sex: Male
  Weight: 102.1 kg

DRUGS (1)
  1. CLOFARABINE. MFR: GENZYME [Suspect]
     Indication: MYELOID LEUKAEMIA
     Dosage: 30 MG/M2 IV
     Route: 042

REACTIONS (26)
  - ADRENAL ADENOMA [None]
  - AGGRESSION [None]
  - ASPIRATION [None]
  - CULTURE POSITIVE [None]
  - DEEP VEIN THROMBOSIS [None]
  - DEPRESSED LEVEL OF CONSCIOUSNESS [None]
  - GENERAL PHYSICAL HEALTH DETERIORATION [None]
  - HILAR LYMPHADENOPATHY [None]
  - LUNG CONSOLIDATION [None]
  - LYMPH NODE CALCIFICATION [None]
  - LYMPHADENOPATHY MEDIASTINAL [None]
  - MOUTH HAEMORRHAGE [None]
  - MOUTH ULCERATION [None]
  - NO THERAPEUTIC RESPONSE [None]
  - PANCYTOPENIA [None]
  - PERIPHERAL ARTERY ANEURYSM [None]
  - PHARYNGEAL ULCERATION [None]
  - PLEURAL EFFUSION [None]
  - PNEUMONIA BACTERIAL [None]
  - PSEUDOMONAS INFECTION [None]
  - PULMONARY EMBOLISM [None]
  - PULMONARY OEDEMA [None]
  - RENAL CYST [None]
  - RESPIRATORY FAILURE [None]
  - SEPTIC SHOCK [None]
  - VARICOSE VEIN [None]
